FAERS Safety Report 10634757 (Version 1)
Quarter: 2014Q4

REPORT INFORMATION
  Report Type: Spontaneous
  Country: US (occurrence: US)
  Receive Date: 20141205
  Receipt Date: 20141205
  Transmission Date: 20150529
  Serious: Yes (Hospitalization)
  Sender: FDA-Public Use
  Company Number: US-ASTRAZENECA-2014SE92599

PATIENT
  Sex: Female

DRUGS (6)
  1. GENERIC DIOVAN /HCTZ [Concomitant]
  2. GENERIC CARDIZEMER [Concomitant]
  3. TOPROL XL [Suspect]
     Active Substance: METOPROLOL SUCCINATE
     Route: 048
  4. ATACAND [Suspect]
     Active Substance: CANDESARTAN CILEXETIL
     Route: 048
  5. GENERIC  COZAAR [Concomitant]
  6. TOPROL XL [Suspect]
     Active Substance: METOPROLOL SUCCINATE
     Dosage: GENERIC
     Route: 048

REACTIONS (1)
  - Blood pressure inadequately controlled [Recovered/Resolved]
